FAERS Safety Report 9752045 (Version 1)
Quarter: 2013Q4

REPORT INFORMATION
  Report Type: Spontaneous
  Country: US (occurrence: None)
  Receive Date: 20131211
  Receipt Date: 20131211
  Transmission Date: 20140711
  Serious: No
  Sender: FDA-Public Use
  Company Number: None

PATIENT
  Age: 95 Year
  Sex: Male
  Weight: 68.04 kg

DRUGS (2)
  1. XARELTO [Suspect]
     Indication: ATRIAL FIBRILLATION
     Dosage: 1 QD ORAL
     Route: 048
     Dates: start: 20131001, end: 20131115
  2. ATORVASTATIN [Concomitant]

REACTIONS (1)
  - Hepatitis cholestatic [None]
